FAERS Safety Report 26117755 (Version 1)
Quarter: 2025Q4

REPORT INFORMATION
  Report Type: Spontaneous
  Country: JP (occurrence: JP)
  Receive Date: 20251203
  Receipt Date: 20251203
  Transmission Date: 20260118
  Serious: Yes (Hospitalization)
  Sender: AMGEN
  Company Number: JP-KISSEI-TV20251179_P_1

PATIENT

DRUGS (3)
  1. TAVNEOS [Suspect]
     Active Substance: AVACOPAN
     Indication: Product used for unknown indication
     Dosage: UNK
     Route: 048
  2. RITUXIMAB [Concomitant]
     Active Substance: RITUXIMAB
     Dosage: UNK
     Route: 040
  3. BOS TAURUS ADRENAL CORTEX CORTICOSTEROIDS [Concomitant]
     Active Substance: BOS TAURUS ADRENAL CORTEX CORTICOSTEROIDS
     Dosage: UNK
     Route: 065

REACTIONS (2)
  - Hepatic enzyme increased [Recovered/Resolved]
  - Blood bilirubin increased [Recovered/Resolved]
